FAERS Safety Report 6639523-3 (Version None)
Quarter: 2010Q1

REPORT INFORMATION
  Report Type: 
  Country: None (occurrence: None)
  Receive Date: 20100318
  Receipt Date: 20100303
  Transmission Date: 20100710
  Serious: Yes (Other)
  Sender: FDA-Public Use
  Company Number: US-ELI_LILLY_AND_COMPANY-US201003002070

PATIENT
  Age: 72 Year
  Sex: Female

DRUGS (3)
  1. FORTEO [Suspect]
     Dates: start: 20100201
  2. PREDNISONE [Concomitant]
  3. OXYCONTIN [Concomitant]

REACTIONS (2)
  - HIP FRACTURE [None]
  - NAUSEA [None]
